FAERS Safety Report 19484318 (Version 3)
Quarter: 2021Q3

REPORT INFORMATION
  Report Type: Report from Study
  Country: DE (occurrence: DE)
  Receive Date: 20210701
  Receipt Date: 20210909
  Transmission Date: 20211014
  Serious: Yes (Hospitalization, Other)
  Sender: FDA-Public Use
  Company Number: DE-PFIZER INC-2021712360

PATIENT
  Age: 69 Year
  Sex: Female
  Weight: 81 kg

DRUGS (17)
  1. PANTOPRAZOL [PANTOPRAZOLE SODIUM SESQUIHYDRATE] [Concomitant]
     Active Substance: PANTOPRAZOLE SODIUM
     Indication: PROPHYLAXIS
     Dosage: UNK
     Route: 065
     Dates: start: 20210412
  2. STEROFUNDIN [Concomitant]
     Active Substance: CALCIUM CHLORIDE\MAGNESIUM CHLORIDE\POTASSIUM CHLORIDE\SODIUM ACETATE\SODIUM CHLORIDE
     Indication: DIVERTICULITIS
     Dosage: UNK
     Route: 065
     Dates: start: 20210428, end: 20210502
  3. CLEXANE [Concomitant]
     Active Substance: ENOXAPARIN SODIUM
     Indication: PROPHYLAXIS
     Dosage: UNK
     Route: 065
     Dates: start: 20210429, end: 20210511
  4. ARIXTRA [Concomitant]
     Active Substance: FONDAPARINUX SODIUM
     Indication: PROPHYLAXIS
     Dosage: UNK
     Route: 065
     Dates: start: 20210329, end: 20210411
  5. PENICILINA [BENZYLPENICILLIN SODIUM] [Concomitant]
     Indication: INFECTED SEROMA
     Dosage: UNK
     Dates: start: 20210402, end: 20210412
  6. MEKTOVI [Suspect]
     Active Substance: BINIMETINIB
     Indication: MALIGNANT MELANOMA
     Dosage: 45 MG, BID (2/DAY) (ONCE EVERY 12 HOUR)
     Route: 048
     Dates: start: 20201026, end: 20201205
  7. BISOPROLOL/BISOPROLOL FUMARATE/HYDROCHLOROTHIAZIDE [Concomitant]
     Active Substance: BISOPROLOL FUMARATE\HYDROCHLOROTHIAZIDE
     Dosage: UNK UNK, UNKNOWN
     Route: 065
  8. INDAPAMID [Concomitant]
     Active Substance: INDAPAMIDE
     Dosage: UNK UNK, UNKNOWN
     Route: 065
  9. METRONIDAZOL [METRONIDAZOLE] [Concomitant]
     Active Substance: METRONIDAZOLE
     Indication: DIVERTICULITIS
     Dosage: UNK
     Route: 065
     Dates: start: 20210430, end: 20210511
  10. LOPERAMID [Concomitant]
     Active Substance: LOPERAMIDE
     Indication: DIARRHOEA
     Dosage: UNK
     Route: 065
     Dates: start: 20210423, end: 20210509
  11. CLEXANE T [Concomitant]
     Active Substance: ENOXAPARIN SODIUM
     Indication: PROPHYLAXIS
     Dosage: UNK
     Route: 065
     Dates: start: 20210429, end: 20210511
  12. MEKTOVI [Suspect]
     Active Substance: BINIMETINIB
     Dosage: 45 MG, BID (2/DAY) (ONCE EVERY 12 HOUR)
     Route: 048
     Dates: start: 20201208
  13. MOXIFLOXACIN. [Concomitant]
     Active Substance: MOXIFLOXACIN
     Indication: INFECTED SEROMA
     Dosage: UNK
     Route: 065
     Dates: start: 20210401, end: 20210401
  14. BRAFTOVI [Suspect]
     Active Substance: ENCORAFENIB
     Indication: MALIGNANT MELANOMA
     Dosage: 450 MG, QD (1/DAY)
     Route: 048
     Dates: start: 20201026
  15. ATORVASTATIN [Concomitant]
     Active Substance: ATORVASTATIN
     Dosage: UNK UNK, UNKNOWN
     Route: 065
  16. MOXIFLOXACIN. [Concomitant]
     Active Substance: MOXIFLOXACIN
     Dosage: UNK
     Route: 065
     Dates: start: 20210407, end: 20210411
  17. PIPERACILLIN/TAZOBACTAM [Concomitant]
     Active Substance: PIPERACILLIN SODIUM\TAZOBACTAM SODIUM
     Indication: DIVERTICULITIS
     Dosage: UNK
     Route: 065

REACTIONS (5)
  - Rash maculo-papular [Not Recovered/Not Resolved]
  - Infected seroma [Recovered/Resolved]
  - Nausea [Not Recovered/Not Resolved]
  - Vision blurred [Recovered/Resolved]
  - Diverticulitis [Recovered/Resolved]

NARRATIVE: CASE EVENT DATE: 20201204
